FAERS Safety Report 5083635-5 (Version None)
Quarter: 2006Q3

REPORT INFORMATION
  Report Type: 
  Country: None (occurrence: None)
  Receive Date: 20060818
  Receipt Date: 20041115
  Transmission Date: 20061208
  Serious: Yes (Hospitalization)
  Sender: FDA-Public Use
  Company Number: 2004UW23506

PATIENT
  Age: 35 Year
  Sex: Male
  Weight: 79.4 kg

DRUGS (7)
  1. CRESTOR [Suspect]
     Route: 048
     Dates: start: 20031001, end: 20041021
  2. ZYRTEC [Concomitant]
  3. FLONASE [Concomitant]
  4. PROPECIA [Concomitant]
  5. RHINOCORT [Concomitant]
  6. PRAVACHOL [Concomitant]
  7. VITAMINS [Concomitant]

REACTIONS (3)
  - GASTROOESOPHAGEAL REFLUX DISEASE [None]
  - MYOSITIS [None]
  - RHABDOMYOLYSIS [None]
